FAERS Safety Report 7413208-8 (Version None)
Quarter: 2011Q2

REPORT INFORMATION
  Report Type: 
  Country: None (occurrence: None)
  Receive Date: 20110413
  Receipt Date: 20110329
  Transmission Date: 20111010
  Serious: Yes (Other)
  Sender: FDA-Public Use
  Company Number: CA-GENENTECH-304143

PATIENT
  Sex: Female
  Weight: 74.014 kg

DRUGS (4)
  1. XOLAIR [Suspect]
     Indication: ASTHMA
     Dosage: 150 MG, Q2W
     Route: 058
     Dates: start: 20090826
  2. PREDNISONE [Concomitant]
     Indication: PRODUCT USED FOR UNKNOWN INDICATION
     Dosage: 15 MG, QD
  3. XOLAIR [Suspect]
     Dosage: 150 MG, 1/MONTH
     Route: 058
     Dates: start: 20100309
  4. QVAR 40 [Concomitant]
     Indication: PRODUCT USED FOR UNKNOWN INDICATION

REACTIONS (11)
  - SKIN ATROPHY [None]
  - LACERATION [None]
  - DYSPNOEA [None]
  - ASTHMA [None]
  - DRUG INEFFECTIVE [None]
  - COUGH [None]
  - PULMONARY CONGESTION [None]
  - WHEEZING [None]
  - CHEST DISCOMFORT [None]
  - CONTUSION [None]
  - LUNG DISORDER [None]
